FAERS Safety Report 14563058 (Version 1)
Quarter: 2018Q1

REPORT INFORMATION
  Report Type: Spontaneous
  Country: US (occurrence: US)
  Receive Date: 20180221
  Receipt Date: 20180221
  Transmission Date: 20180509
  Serious: Yes (Other)
  Sender: FDA-Public Use
  Company Number: None

PATIENT
  Age: 49 Year
  Sex: Female

DRUGS (2)
  1. FENTANYL TRANSDERMAL SYSTEM [Concomitant]
     Active Substance: FENTANYL
  2. LYRICA [Suspect]
     Active Substance: PREGABALIN

REACTIONS (2)
  - Dental caries [None]
  - Dry mouth [None]

NARRATIVE: CASE EVENT DATE: 20151230
